FAERS Safety Report 6671051-1 (Version None)
Quarter: 2010Q2

REPORT INFORMATION
  Report Type: 
  Country: None (occurrence: None)
  Receive Date: 20100407
  Receipt Date: 20100326
  Transmission Date: 20101027
  Serious: Yes (Death, Other)
  Sender: FDA-Public Use
  Company Number: US-PFIZER INC-2010019038

PATIENT
  Sex: Male
  Weight: 70.306 kg

DRUGS (5)
  1. VFEND [Suspect]
     Indication: LUNG DISORDER
     Dosage: 200 MG, 2X/DAY
     Dates: start: 20100201, end: 20100203
  2. VFEND [Suspect]
     Indication: FUNGAL INFECTION
  3. FLUCONAZOLE [Suspect]
     Dosage: UNK
  4. FLUCONAZOLE [Suspect]
     Dosage: 200 MG, 2X/DAY
  5. TRICOR [Suspect]
     Dosage: UNK

REACTIONS (4)
  - ACUTE MYELOID LEUKAEMIA RECURRENT [None]
  - PNEUMONIA ASPIRATION [None]
  - PULMONARY MASS [None]
  - RESPIRATORY FAILURE [None]
